FAERS Safety Report 4337427-2 (Version None)
Quarter: 2004Q2

REPORT INFORMATION
  Report Type: 
  Country: None (occurrence: None)
  Receive Date: 20040408
  Receipt Date: 20040326
  Transmission Date: 20050107
  Serious: Yes (Hospitalization)
  Sender: FDA-Public Use
  Company Number: UK070557

PATIENT
  Age: 72 Year
  Sex: Female
  Weight: 54 kg

DRUGS (6)
  1. NEULASTA [Suspect]
     Dosage: SC
     Route: 058
     Dates: start: 20040227, end: 20040227
  2. EPIRUBICIN [Concomitant]
  3. FLUOROURACIL [Concomitant]
  4. CYCLOPHOSPHAMIDE [Concomitant]
  5. METHYLPREDNISOLONE [Concomitant]
  6. GRANISETRON HCL [Concomitant]

REACTIONS (2)
  - PAIN [None]
  - TREMOR [None]
